FAERS Safety Report 26178297 (Version 1)
Quarter: 2025Q4

REPORT INFORMATION
  Report Type: Spontaneous
  Country: IL (occurrence: IL)
  Receive Date: 20251219
  Receipt Date: 20251219
  Transmission Date: 20260117
  Serious: Yes (Other)
  Sender: REGENERON
  Company Number: IL-BAYER-2025A151049

PATIENT
  Age: 82 Year
  Sex: Female

DRUGS (1)
  1. EYLEA HD [Suspect]
     Active Substance: AFLIBERCEPT
     Indication: Macular degeneration
     Dosage: UNK, SOLUTION FOR INJECTION, 114.3 MG/ML
     Dates: end: 20251008

REACTIONS (3)
  - Proliferative vitreoretinopathy [Unknown]
  - Retinal detachment [Unknown]
  - Retinal scar [Unknown]

NARRATIVE: CASE EVENT DATE: 20251015
